FAERS Safety Report 20670084 (Version 1)
Quarter: 2022Q2

REPORT INFORMATION
  Report Type: Spontaneous
  Country: IL (occurrence: None)
  Receive Date: 20220404
  Receipt Date: 20220404
  Transmission Date: 20220721
  Serious: Yes (Other)
  Sender: FDA-Public Use
  Company Number: IL-ROCHE-3063026

PATIENT
  Age: 75 Year
  Sex: Female

DRUGS (2)
  1. POLIVY [Suspect]
     Active Substance: POLATUZUMAB VEDOTIN-PIIQ
     Indication: Diffuse large B-cell lymphoma recurrent
     Dosage: 6 R-POLA-GEMOX CYCLES
     Route: 065
     Dates: start: 20220130
  2. RITUXIMAB [Suspect]
     Active Substance: RITUXIMAB
     Indication: Diffuse large B-cell lymphoma recurrent
     Dosage: 6 X R-CHOP COURSES
     Route: 065
     Dates: start: 202006

REACTIONS (10)
  - Hypersensitivity [Unknown]
  - Cytopenia [Unknown]
  - Nervous system disorder [Unknown]
  - Nausea [Unknown]
  - Diarrhoea [Unknown]
  - Asthenia [Unknown]
  - Cough [Unknown]
  - Dizziness [Unknown]
  - Fatigue [Unknown]
  - Weight decreased [Unknown]
